FAERS Safety Report 16544293 (Version 1)
Quarter: 2019Q3

REPORT INFORMATION
  Report Type: Spontaneous
  Country: DK (occurrence: DK)
  Receive Date: 20190709
  Receipt Date: 20190709
  Transmission Date: 20191004
  Serious: Yes (Other)
  Sender: FDA-Public Use
  Company Number: DK-AMGEN-DNKSP2019106324

PATIENT
  Age: 75 Year
  Sex: Male

DRUGS (12)
  1. XGEVA [Suspect]
     Active Substance: DENOSUMAB
     Indication: PROSTATE CANCER METASTATIC
     Dosage: STYRKE: 120 MG.
     Route: 058
     Dates: start: 20140602
  2. LIPEGFILGRASTIM [Concomitant]
     Active Substance: LIPEGFILGRASTIM
     Indication: NEUTROPENIA
     Dosage: 6 MILLIGRAM
     Dates: start: 20170802
  3. LEUPRORELIN [Concomitant]
     Active Substance: LEUPROLIDE ACETATE
     Indication: PROSTATE CANCER
     Dosage: 45 MILLIGRAM, Q6MO
     Dates: start: 20180620
  4. FUROSEMIDE. [Concomitant]
     Active Substance: FUROSEMIDE
     Indication: DIURETIC THERAPY
     Dosage: 30 MILLIGRAM, QD
     Route: 048
     Dates: start: 20170905
  5. LEVETIRACETAM. [Concomitant]
     Active Substance: LEVETIRACETAM
     Indication: EPILEPSY
     Dosage: 1500 MILLIGRAM, QD
     Route: 048
     Dates: start: 20170504
  6. LEVETIRACETAM. [Concomitant]
     Active Substance: LEVETIRACETAM
     Dosage: 500 MILLIGRAM, QD
     Route: 048
     Dates: start: 20170504
  7. MOMETASONE FUROATE. [Concomitant]
     Active Substance: MOMETASONE FUROATE
     Indication: NASAL MUCOSAL DISORDER
     Dosage: 50 MICROGRAM/DOSE, 2-3 SPRAYS IN EACH NOSTRIL
     Route: 045
     Dates: start: 20171208
  8. CALCIUM + VITAMIN D [CALCIUM;COLECALCIFEROL] [Concomitant]
     Indication: MINERAL SUPPLEMENTATION
     Dosage: 2 DOSAGE FORM, QD
     Route: 048
     Dates: start: 20151123
  9. VISCOTEARS [Concomitant]
     Active Substance: CARBOMER
     Indication: LACRIMATION DECREASED
     Dosage: 2 MILLIGRAM PER GRAM, QD
     Route: 050
     Dates: start: 20180426
  10. POTASSIUM CHLORIDE. [Concomitant]
     Active Substance: POTASSIUM CHLORIDE
     Indication: MINERAL SUPPLEMENTATION
     Dosage: 750 MILLIGRAM, QD
     Route: 048
     Dates: start: 20170905
  11. DOMPERIDONE [Concomitant]
     Active Substance: DOMPERIDONE
     Indication: ADVERSE DRUG REACTION
     Dosage: 10 MILLIGRAM, AS NECESSARY
     Route: 048
     Dates: start: 20181106
  12. ALFUZOSIN [Concomitant]
     Active Substance: ALFUZOSIN
     Indication: DYSURIA
     Dosage: 10 MILLIGRAM, QD
     Route: 048
     Dates: start: 20141121

REACTIONS (6)
  - Oral cavity fistula [Recovered/Resolved]
  - Osteonecrosis of jaw [Recovered/Resolved]
  - Pain in jaw [Recovered/Resolved]
  - Swelling face [Recovered/Resolved]
  - Purulence [Recovered/Resolved]
  - Sequestrectomy [Recovered/Resolved]

NARRATIVE: CASE EVENT DATE: 201812
